FAERS Safety Report 8130065-5 (Version None)
Quarter: 2011Q4

REPORT INFORMATION
  Report Type: 
  Country: None (occurrence: None)
  Receive Date: 20111227
  Receipt Date: 20110913
  Transmission Date: 20120403
  Serious: No
  Sender: FDA-Public Use
  Company Number: PHEH2011US03274

PATIENT
  Age: 46 Year
  Sex: Female

DRUGS (4)
  1. KEPPRA [Concomitant]
  2. LORAZEPAM [Concomitant]
  3. GILENYA [Suspect]
     Indication: MULTIPLE SCLEROSIS
     Dosage: 0.5 MG, QD, ORAL
     Route: 048
     Dates: start: 20110823
  4. EFFEXOR XR [Concomitant]

REACTIONS (2)
  - NAUSEA [None]
  - VOMITING [None]
